FAERS Safety Report 9104189 (Version 1)
Quarter: 2013Q1

REPORT INFORMATION
  Report Type: Spontaneous
  Country: US (occurrence: US)
  Receive Date: 20130219
  Receipt Date: 20130219
  Transmission Date: 20140127
  Serious: Yes (Death, Hospitalization)
  Sender: FDA-Public Use
  Company Number: US-PFIZER INC-2013058853

PATIENT
  Age: 62 Year
  Sex: Female
  Weight: 58.96 kg

DRUGS (8)
  1. ADVIL [Suspect]
     Indication: RHEUMATOID ARTHRITIS
     Dosage: 200 MG, DAILY FOR YEARS IN THE EVENING
  2. LEVOTHYROXINE SODIUM [Suspect]
     Indication: HYPOTHYROIDISM
     Dosage: UNK
  3. FOLIC ACID [Suspect]
     Indication: RHEUMATOID ARTHRITIS
     Dosage: DAILY FOR YEARS
  4. METHOTREXATE [Suspect]
     Indication: RHEUMATOID ARTHRITIS
     Dosage: 7.5 MG, WEEKLY
     Route: 048
     Dates: end: 20120403
  5. ENBREL [Suspect]
     Indication: RHEUMATOID ARTHRITIS
     Dosage: UNK
     Dates: start: 2002, end: 2011
  6. HUMIRA [Suspect]
     Indication: RHEUMATOID ARTHRITIS
     Dosage: 40 MG, 1 IN 2 WK
     Route: 058
     Dates: start: 20120110, end: 20120402
  7. FOSAMAX [Suspect]
     Indication: OSTEOPOROSIS
     Dosage: WEEKLY FOR YEAR
  8. RITUXIMAB [Suspect]
     Indication: RHEUMATOID ARTHRITIS
     Dosage: 100 MG, UNK
     Route: 042

REACTIONS (3)
  - Hepatic failure [Fatal]
  - Acute hepatitis B [Fatal]
  - Influenza like illness [Unknown]
